FAERS Safety Report 9281069 (Version 1)
Quarter: 2013Q2

REPORT INFORMATION
  Report Type: Spontaneous
  Country: US (occurrence: US)
  Receive Date: 20130509
  Receipt Date: 20130509
  Transmission Date: 20140414
  Serious: No
  Sender: FDA-Public Use
  Company Number: US-ROXANE LABORATORIES, INC.-2013-RO-00711RO

PATIENT
  Age: 51 Year
  Sex: Female

DRUGS (2)
  1. PREDNISONE [Suspect]
     Indication: INFLAMMATION
     Dates: start: 20130116, end: 201302
  2. VICTOZA [Suspect]
     Dates: start: 201303

REACTIONS (1)
  - Alopecia [Not Recovered/Not Resolved]
